FAERS Safety Report 19621414 (Version 2)
Quarter: 2021Q4

REPORT INFORMATION
  Report Type: Spontaneous
  Country: US (occurrence: US)
  Receive Date: 20210728
  Receipt Date: 20211029
  Transmission Date: 20220303
  Serious: No
  Sender: FDA-Public Use
  Company Number: US-BAYER-2021-180428

PATIENT
  Age: 47 Year
  Sex: Female
  Weight: 68.8 kg

DRUGS (5)
  1. MIRENA [Suspect]
     Active Substance: LEVONORGESTREL
     Indication: Menstrual disorder
     Dosage: 20?G/DAY
     Route: 015
     Dates: start: 20200922
  2. MIRENA [Suspect]
     Active Substance: LEVONORGESTREL
     Indication: Abnormal uterine bleeding
  3. ACETAMINOPHEN [Concomitant]
     Active Substance: ACETAMINOPHEN
  4. MIRALAX [Concomitant]
     Active Substance: POLYETHYLENE GLYCOL 3350
  5. FERROUS SULPHATE + FOLIC ACID [Concomitant]

REACTIONS (6)
  - Device expulsion [Not Recovered/Not Resolved]
  - Vaginal haemorrhage [None]
  - Adverse event [None]
  - Headache [None]
  - Abnormal uterine bleeding [None]
  - Fall [None]

NARRATIVE: CASE EVENT DATE: 20210101
